FAERS Safety Report 6928507-3 (Version None)
Quarter: 2010Q3

REPORT INFORMATION
  Report Type: 
  Country: None (occurrence: None)
  Receive Date: 20100817
  Receipt Date: 20100805
  Transmission Date: 20110219
  Serious: Yes (Hospitalization)
  Sender: FDA-Public Use
  Company Number: FR-PFIZER INC-2010098933

PATIENT
  Age: 82 Year
  Sex: Female

DRUGS (1)
  1. SALAZOPYRINE [Suspect]
     Dosage: UNK
     Route: 048
     Dates: start: 20100420, end: 20100423

REACTIONS (2)
  - ACUTE GENERALISED EXANTHEMATOUS PUSTULOSIS [None]
  - LEUKOCYTOSIS [None]
